FAERS Safety Report 23344881 (Version 3)
Quarter: 2024Q2

REPORT INFORMATION
  Report Type: Report from Study
  Country: US (occurrence: US)
  Receive Date: 20231228
  Receipt Date: 20240618
  Transmission Date: 20240715
  Serious: Yes (Other)
  Sender: FDA-Public Use
  Company Number: US-ACADIA PHARMACEUTICALS INC.-ACA-2023-PIM-005601

PATIENT
  Sex: Male

DRUGS (4)
  1. NUPLAZID [Suspect]
     Active Substance: PIMAVANSERIN TARTRATE
     Indication: Parkinson^s disease psychosis
     Dosage: 34 MILLIGRAM, QD
     Route: 048
  2. NUPLAZID [Suspect]
     Active Substance: PIMAVANSERIN TARTRATE
     Dosage: 34 MILLIGRAM, QD
     Route: 048
  3. NUPLAZID [Suspect]
     Active Substance: PIMAVANSERIN TARTRATE
     Indication: Parkinson^s disease psychosis
     Dosage: UNKNOWN
  4. NUPLAZID [Suspect]
     Active Substance: PIMAVANSERIN TARTRATE
     Dosage: UNKNOWN

REACTIONS (14)
  - Loss of consciousness [Unknown]
  - Product dose omission issue [Recovered/Resolved]
  - Dementia with Lewy bodies [Unknown]
  - Skin odour abnormal [Unknown]
  - Urine odour abnormal [Unknown]
  - Skin odour abnormal [Unknown]
  - Post-traumatic stress disorder [Unknown]
  - Ill-defined disorder [Unknown]
  - Sensation of foreign body [Not Recovered/Not Resolved]
  - Product dose omission issue [Recovered/Resolved]
  - Speech disorder [Unknown]
  - Dementia [Unknown]
  - Product dose omission issue [Recovered/Resolved]
  - Hallucination [Unknown]
